FAERS Safety Report 4950169-5 (Version None)
Quarter: 2006Q1

REPORT INFORMATION
  Report Type: 
  Country: None (occurrence: None)
  Receive Date: 20060316
  Receipt Date: 20060309
  Transmission Date: 20060701
  Serious: Yes (Hospitalization)
  Sender: FDA-Public Use
  Company Number: 200610840GDS

PATIENT
  Age: 57 Year
  Sex: Male
  Weight: 85 kg

DRUGS (4)
  1. SORAFENIB [Suspect]
     Indication: RENAL CELL CARCINOMA STAGE UNSPECIFIED
     Dosage: 400 MG, BID, ORAL
     Route: 048
     Dates: start: 20060125
  2. ADALAT [Suspect]
     Indication: HYPERTENSION
     Dosage: 60 MG, TOTAL DAILY, ORAL
     Route: 048
     Dates: start: 20060222
  3. LASIX [Concomitant]
  4. CODEINE PHOSPHATE AND ACETAMINOPHEN [Concomitant]

REACTIONS (2)
  - ANGINA UNSTABLE [None]
  - HYPERCHOLESTEROLAEMIA [None]
